FAERS Safety Report 25188904 (Version 1)
Quarter: 2025Q2

REPORT INFORMATION
  Report Type: Spontaneous
  Country: US (occurrence: None)
  Receive Date: 20250410
  Receipt Date: 20250410
  Transmission Date: 20250717
  Serious: Yes (Hospitalization)
  Sender: FDA-CTU
  Company Number: None

PATIENT
  Age: 50 Year
  Sex: Female

DRUGS (1)
  1. TEZSPIRE [Suspect]
     Active Substance: TEZEPELUMAB-EKKO
     Indication: Asthma
     Route: 042

REACTIONS (5)
  - Bronchitis [None]
  - Lung disorder [None]
  - Pulmonary pain [None]
  - Asthma [None]
  - Quality of life decreased [None]

NARRATIVE: CASE EVENT DATE: 20250201
